FAERS Safety Report 23019236 (Version 1)
Quarter: 2023Q4

REPORT INFORMATION
  Report Type: Spontaneous
  Country: CA (occurrence: CA)
  Receive Date: 20231003
  Receipt Date: 20231003
  Transmission Date: 20240109
  Serious: Yes (Hospitalization)
  Sender: FDA-Public Use
  Company Number: None

PATIENT
  Age: 58 Year
  Sex: Female

DRUGS (1)
  1. OZEMPIC [Suspect]
     Active Substance: SEMAGLUTIDE
     Indication: Weight control
     Dosage: ONCE

REACTIONS (11)
  - Chest pain [Recovering/Resolving]
  - Confusional state [Recovering/Resolving]
  - Disorientation [Recovering/Resolving]
  - Headache [Recovering/Resolving]
  - Memory impairment [Recovering/Resolving]
  - Repetitive speech [Recovering/Resolving]
  - Asthenia [Recovering/Resolving]
  - Nausea [Recovering/Resolving]
  - Abdominal discomfort [Recovering/Resolving]
  - Abdominal pain [Recovering/Resolving]
  - Vomiting [Recovering/Resolving]
